FAERS Safety Report 6254599-3 (Version None)
Quarter: 2009Q3

REPORT INFORMATION
  Report Type: 
  Country: None (occurrence: None)
  Receive Date: 20090702
  Receipt Date: 20090629
  Transmission Date: 20100115
  Serious: Yes (Other)
  Sender: FDA-Public Use
  Company Number: A0794339A

PATIENT
  Age: 60 Year
  Sex: Female

DRUGS (9)
  1. REQUIP XL [Suspect]
     Indication: PARKINSON'S DISEASE
     Dosage: 8MG PER DAY
     Route: 048
     Dates: start: 20081201, end: 20090301
  2. ROPINIROLE [Suspect]
     Indication: PARKINSON'S DISEASE
     Dosage: 2MG SINGLE DOSE
     Route: 048
     Dates: start: 20090627
  3. AZILECT [Concomitant]
  4. CALCIUM [Concomitant]
  5. FIBER [Concomitant]
  6. VITAMIN B COMPLEX CAP [Concomitant]
  7. COD LIVER OIL [Concomitant]
  8. MULTI-VITAMIN [Concomitant]
  9. COENZYME Q10 [Concomitant]

REACTIONS (14)
  - ASTHENIA [None]
  - BACK PAIN [None]
  - DISORIENTATION [None]
  - ECONOMIC PROBLEM [None]
  - FATIGUE [None]
  - HYPOVENTILATION [None]
  - INSOMNIA [None]
  - MANIA [None]
  - MUSCULOSKELETAL STIFFNESS [None]
  - NAUSEA [None]
  - PERSONALITY CHANGE [None]
  - PSYCHOMOTOR HYPERACTIVITY [None]
  - SOMNOLENCE [None]
  - TREMOR [None]
